FAERS Safety Report 8762768 (Version 1)
Quarter: 2012Q4

REPORT INFORMATION
  Report Type: 
  Country: US (occurrence: US)
  Receive Date: 20120828
  Receipt Date: 20120828
  Transmission Date: 20130627
  Serious: No
  Sender: FDA-Public Use
  Company Number: US-ABBOTT-12P-163-0943544-00

PATIENT
  Sex: Male

DRUGS (1)
  1. ANDROGEL 1.62% [Suspect]
     Indication: BLOOD TESTOSTERONE DECREASED

REACTIONS (1)
  - Drug administered at inappropriate site [Not Recovered/Not Resolved]
